FAERS Safety Report 17135347 (Version 1)
Quarter: 2019Q4

REPORT INFORMATION
  Report Type: Spontaneous
  Country: US (occurrence: US)
  Receive Date: 20191210
  Receipt Date: 20191210
  Transmission Date: 20200122
  Serious: No
  Sender: FDA-Public Use
  Company Number: US-PFIZER INC-2019402278

PATIENT
  Age: 65 Year
  Sex: Female

DRUGS (43)
  1. TOVIAZ [Concomitant]
     Active Substance: FESOTERODINE FUMARATE
     Dosage: UNK
  2. MAGNESIUM OXIDE. [Concomitant]
     Active Substance: MAGNESIUM OXIDE
     Dosage: UNK
     Dates: start: 2010
  3. LEXAPRO [Concomitant]
     Active Substance: ESCITALOPRAM OXALATE
     Dosage: UNK
  4. FOLIC ACID. [Concomitant]
     Active Substance: FOLIC ACID
     Dosage: UNK
  5. ASPRIN 81 [Concomitant]
     Dosage: UNK
  6. METHOCARBAMOL. [Concomitant]
     Active Substance: METHOCARBAMOL
     Dosage: UNK
  7. TOPIRAMATE. [Concomitant]
     Active Substance: TOPIRAMATE
     Dosage: UNK
  8. NEXIUM [Concomitant]
     Active Substance: ESOMEPRAZOLE MAGNESIUM
     Dosage: UNK
  9. VITAMIN D3 [Concomitant]
     Active Substance: CHOLECALCIFEROL
     Dosage: UNK
     Dates: start: 2008
  10. COLACE [Concomitant]
     Active Substance: DOCUSATE SODIUM
     Dosage: UNK
  11. METFORMIN [Concomitant]
     Active Substance: METFORMIN HYDROCHLORIDE
     Dosage: UNK
     Dates: start: 2005
  12. ZYRTEC [Concomitant]
     Active Substance: CETIRIZINE HYDROCHLORIDE
     Dosage: UNK
  13. LYRICA [Concomitant]
     Active Substance: PREGABALIN
     Dosage: UNK
  14. VICTOZA [Concomitant]
     Active Substance: LIRAGLUTIDE
     Dosage: UNK
  15. COENZYME Q10 [Concomitant]
     Active Substance: UBIDECARENONE
     Dosage: UNK
  16. TEKTURNA [Concomitant]
     Active Substance: ALISKIREN HEMIFUMARATE
     Dosage: UNK
  17. TRICOR [Concomitant]
     Active Substance: FENOFIBRATE
     Dosage: UNK
     Dates: start: 2005
  18. FERROUS SULFATE. [Concomitant]
     Active Substance: FERROUS SULFATE
     Dosage: UNK
  19. AMITIZA [Concomitant]
     Active Substance: LUBIPROSTONE
     Dosage: UNK
     Dates: end: 2015
  20. FLUTICASONE ACTUATION DISK [Concomitant]
     Dosage: UNK
  21. TRADJENTA [Concomitant]
     Active Substance: LINAGLIPTIN
     Dosage: UNK
  22. COREG [Concomitant]
     Active Substance: CARVEDILOL
     Dosage: UNK
  23. ADVAIR DISKUS [Concomitant]
     Active Substance: FLUTICASONE PROPIONATE\SALMETEROL XINAFOATE
     Dosage: UNK
  24. LOSARTAN. [Concomitant]
     Active Substance: LOSARTAN
     Dosage: UNK
  25. ALLEGRA [Concomitant]
     Active Substance: FEXOFENADINE HYDROCHLORIDE
     Dosage: UNK
  26. DOCETAXEL. [Suspect]
     Active Substance: DOCETAXEL
     Indication: INVASIVE LOBULAR BREAST CARCINOMA
     Dosage: 145 MG, CYCLIC (EVERY THREE WEEKS, 06 CYCLES)
     Dates: start: 20140129, end: 20140512
  27. PARAPLATIN [Concomitant]
     Active Substance: CARBOPLATIN
     Indication: INVASIVE LOBULAR BREAST CARCINOMA
     Dosage: UNK, CYCLIC (06 CYCLES)
  28. HERCEPTIN [Concomitant]
     Active Substance: TRASTUZUMAB
     Indication: INVASIVE LOBULAR BREAST CARCINOMA
     Dosage: UNK
  29. LOW DOSE ASPRIN [Concomitant]
     Active Substance: ASPIRIN
     Dosage: UNK
  30. ALBUTEROL. [Concomitant]
     Active Substance: ALBUTEROL
     Dosage: UNK
     Dates: start: 1990
  31. LORAZEPAM. [Concomitant]
     Active Substance: LORAZEPAM
     Dosage: UNK
  32. WELLBUTRIN [Concomitant]
     Active Substance: BUPROPION HYDROCHLORIDE
     Dosage: UNK
  33. TAXOTERE [Suspect]
     Active Substance: DOCETAXEL
     Indication: INVASIVE LOBULAR BREAST CARCINOMA
     Dosage: 145 MG, CYCLIC (EVERY THREE WEEKS, 06 CYCLES)
     Dates: start: 20140129, end: 20140512
  34. LOVAZA [Concomitant]
     Active Substance: OMEGA-3-ACID ETHYL ESTERS
     Dosage: UNK
  35. VITAMIN B12 [Concomitant]
     Active Substance: CYANOCOBALAMIN
     Dosage: UNK
  36. ANASTROZOLE. [Concomitant]
     Active Substance: ANASTROZOLE
     Indication: INVASIVE LOBULAR BREAST CARCINOMA
     Dosage: UNK
     Dates: start: 201406, end: 201605
  37. FLUTICASONE. [Concomitant]
     Active Substance: FLUTICASONE
     Dosage: UNK
     Dates: start: 2012
  38. CYMBALTA [Concomitant]
     Active Substance: DULOXETINE HYDROCHLORIDE
     Dosage: UNK
  39. ALDACTONE [Concomitant]
     Active Substance: SPIRONOLACTONE
     Dosage: UNK
     Dates: start: 1988, end: 2015
  40. VENTOLIN FHA [Concomitant]
     Dosage: UNK
     Dates: start: 1990
  41. CRESTOR [Concomitant]
     Active Substance: ROSUVASTATIN CALCIUM
     Dosage: UNK
  42. MIRAPEX [Concomitant]
     Active Substance: PRAMIPEXOLE DIHYDROCHLORIDE
     Dosage: UNK
  43. GLUCOSAMINE CHONDROITIN [Concomitant]
     Active Substance: CHONDROITIN SULFATE (BOVINE)\GLUCOSAMINE HYDROCHLORIDE
     Dosage: UNK

REACTIONS (5)
  - Hair texture abnormal [Not Recovered/Not Resolved]
  - Hair colour changes [Not Recovered/Not Resolved]
  - Alopecia [Not Recovered/Not Resolved]
  - Madarosis [Not Recovered/Not Resolved]
  - Hair disorder [Not Recovered/Not Resolved]

NARRATIVE: CASE EVENT DATE: 2014
